FAERS Safety Report 21858383 (Version 1)
Quarter: 2023Q1

REPORT INFORMATION
  Report Type: Spontaneous
  Country: ES (occurrence: ES)
  Receive Date: 20230113
  Receipt Date: 20230113
  Transmission Date: 20230418
  Serious: Yes (Hospitalization, Other)
  Sender: FDA-Public Use
  Company Number: ES-AEMPS-1311516

PATIENT
  Age: 53 Year
  Sex: Female

DRUGS (2)
  1. MEROPENEM [Suspect]
     Active Substance: MEROPENEM
     Indication: Pyrexia
     Dosage: 1 GRAM, 3 TIMES A DAY (1G/8H)
     Route: 042
     Dates: start: 20211231, end: 20220104
  2. METAMIZOL [Suspect]
     Active Substance: METAMIZOLE SODIUM
     Indication: Pain
     Dosage: 2 GRAM, 3 TIMES A DAY (2GR/8H)
     Route: 042
     Dates: start: 20211231, end: 20220104

REACTIONS (2)
  - Pancytopenia [Recovered/Resolved]
  - Condition aggravated [Recovered/Resolved]

NARRATIVE: CASE EVENT DATE: 20220103
